FAERS Safety Report 11010495 (Version 1)
Quarter: 2015Q2

REPORT INFORMATION
  Report Type: Report from Study
  Country: TW (occurrence: TW)
  Receive Date: 20150410
  Receipt Date: 20150410
  Transmission Date: 20150821
  Serious: Yes (Other)
  Sender: FDA-Public Use
  Company Number: TW-MYLANLABS-2015M1011715

PATIENT

DRUGS (2)
  1. MELPHALAN [Suspect]
     Active Substance: MELPHALAN
     Route: 050
  2. MELPHALAN [Suspect]
     Active Substance: MELPHALAN
     Indication: CONGENITAL RETINOBLASTOMA
     Dosage: 5MG/20ML BY SLOW INFUSION WITHIN 30 MINUTES
     Route: 013

REACTIONS (3)
  - Retinal artery occlusion [Unknown]
  - Vitreous haemorrhage [Unknown]
  - Chorioretinal atrophy [Unknown]
